FAERS Safety Report 10237615 (Version 1)
Quarter: 2014Q2

REPORT INFORMATION
  Report Type: Spontaneous
  Country: SE (occurrence: SE)
  Receive Date: 20140616
  Receipt Date: 20140616
  Transmission Date: 20141212
  Serious: Yes (Death)
  Sender: FDA-Public Use
  Company Number: SE-ROCHE-1417779

PATIENT
  Age: 62 Year
  Sex: Male

DRUGS (3)
  1. VALCYTE [Suspect]
     Indication: CYTOMEGALOVIRUS CHORIORETINITIS
     Route: 048
     Dates: start: 20131107, end: 20131129
  2. CANCIDAS [Concomitant]
     Route: 065
  3. OMEPRAZOLE [Concomitant]
     Route: 065

REACTIONS (1)
  - Neutropenic sepsis [Fatal]
